FAERS Safety Report 11224673 (Version 1)
Quarter: 2015Q2

REPORT INFORMATION
  Report Type: Spontaneous
  Country: US (occurrence: US)
  Receive Date: 20150629
  Receipt Date: 20150629
  Transmission Date: 20150821
  Serious: No
  Sender: FDA-Public Use
  Company Number: US-PFIZER INC-2015110130

PATIENT
  Age: 74 Year
  Sex: Female
  Weight: 58.5 kg

DRUGS (1)
  1. SUTENT [Suspect]
     Active Substance: SUNITINIB MALATE
     Indication: NEOPLASM MALIGNANT
     Dosage: 50 MG DAILY IN THE MORNING, CYCLIC (AND STOPS FOR TWO WEEKS)
     Dates: start: 2015

REACTIONS (2)
  - Disease progression [Unknown]
  - Neoplasm malignant [Unknown]
